FAERS Safety Report 6275012-6 (Version None)
Quarter: 2009Q3

REPORT INFORMATION
  Report Type: 
  Country: None (occurrence: None)
  Receive Date: 20090717
  Receipt Date: 20090708
  Transmission Date: 20100115
  Serious: Yes (Hospitalization)
  Sender: FDA-Public Use
  Company Number: 8048804

PATIENT
  Age: 82 Year
  Sex: Female

DRUGS (19)
  1. KEPPRA [Suspect]
     Indication: EPILEPSY
     Dosage: IV
     Route: 042
     Dates: start: 20090313, end: 20090412
  2. TRIATEC /00885601/ [Suspect]
     Indication: CARDIOVASCULAR EVENT PROPHYLAXIS
     Dosage: 1 DF /D
     Dates: start: 20090304, end: 20090313
  3. TEGRETOL [Suspect]
     Indication: NEUROPATHY PERIPHERAL
     Dates: start: 20090306, end: 20090318
  4. INEXIUM /01479302/ [Concomitant]
  5. ASPIRIN [Concomitant]
  6. KARDEGIC /00002703/ [Concomitant]
  7. PLITICAN [Concomitant]
  8. OLICLINOMEL /01716901/ [Concomitant]
  9. TAHOR [Concomitant]
  10. PERIDYS [Concomitant]
  11. AMLOR [Concomitant]
  12. MODAFINIL [Concomitant]
  13. AUGMENTIN '125' [Concomitant]
  14. LOVENOX [Concomitant]
  15. ANAFRANIL [Concomitant]
  16. SANDOSTATINE /00821001/ [Concomitant]
  17. SEROPRAM /00582602/ [Concomitant]
  18. NEOSTIGMINE [Concomitant]
  19. NICARDIPINE HCL [Concomitant]

REACTIONS (1)
  - PANCYTOPENIA [None]
